FAERS Safety Report 22590870 (Version 1)
Quarter: 2023Q2

REPORT INFORMATION
  Report Type: Spontaneous
  Country: IL (occurrence: IL)
  Receive Date: 20230612
  Receipt Date: 20230612
  Transmission Date: 20230721
  Serious: Yes (Hospitalization)
  Sender: FDA-Public Use
  Company Number: IL-002147023-NVSC2023IL131328

PATIENT
  Age: 1 Year
  Sex: Female

DRUGS (1)
  1. MAXITROL [Suspect]
     Active Substance: DEXAMETHASONE\NEOMYCIN SULFATE\POLYMYXIN B SULFATE
     Indication: Product used for unknown indication
     Dosage: UNK (1X3)
     Route: 065
     Dates: start: 20230528

REACTIONS (3)
  - Eye swelling [Recovering/Resolving]
  - Eye disorder [Unknown]
  - Eye inflammation [Not Recovered/Not Resolved]
